FAERS Safety Report 13114239 (Version 1)
Quarter: 2017Q1

REPORT INFORMATION
  Report Type: Spontaneous
  Country: US (occurrence: US)
  Receive Date: 20170113
  Receipt Date: 20170113
  Transmission Date: 20170428
  Serious: No
  Sender: FDA-Public Use
  Company Number: US-PFIZER INC-2017016238

PATIENT
  Age: 68 Year
  Sex: Male
  Weight: 150 kg

DRUGS (2)
  1. OXYCODONE [Concomitant]
     Active Substance: OXYCODONE
     Indication: BACK PAIN
     Dosage: 5 MG, AS NEEDED (1 OR 2 TABLETS AS NEEDED FOR THE LAST 3 TO 4 DAYS)
     Dates: start: 2016
  2. ADVIL [Suspect]
     Active Substance: IBUPROFEN
     Indication: BACK PAIN
     Dosage: 4 DF, DAILY (2 TABLETS EVERY 4 HOURS, BUT CLARIFIED HE DID NOT TAKE MORE THAN 4 IN A DAY)
     Dates: start: 201701, end: 20170112

REACTIONS (2)
  - Hypoaesthesia oral [Not Recovered/Not Resolved]
  - Hypersensitivity [Unknown]

NARRATIVE: CASE EVENT DATE: 201701
